FAERS Safety Report 17987047 (Version 1)
Quarter: 2020Q3

REPORT INFORMATION
  Report Type: Spontaneous
  Country: ZA (occurrence: ZA)
  Receive Date: 20200707
  Receipt Date: 20200707
  Transmission Date: 20201103
  Serious: Yes (Death)
  Sender: FDA-Public Use
  Company Number: ZA-ROCHE-2634859

PATIENT
  Age: 48 Year
  Sex: Male
  Weight: 89 kg

DRUGS (13)
  1. ACTEMRA [Suspect]
     Active Substance: TOCILIZUMAB
     Indication: COVID-19 PNEUMONIA
     Dosage: STAT
     Route: 042
     Dates: start: 20200625
  2. FUROSEMIDE. [Concomitant]
     Active Substance: FUROSEMIDE
     Route: 042
  3. PANTOPRAZOLE [Concomitant]
     Active Substance: PANTOPRAZOLE
     Route: 042
  4. METFORMIN [Concomitant]
     Active Substance: METFORMIN HYDROCHLORIDE
     Route: 065
  5. VITAMIN D3 [Concomitant]
     Active Substance: CHOLECALCIFEROL
  6. POLYGAM [Concomitant]
     Active Substance: HUMAN IMMUNOGLOBULIN G
  7. MEROPENEM. [Concomitant]
     Active Substance: MEROPENEM
     Route: 065
  8. LAMIVUDINE. [Concomitant]
     Active Substance: LAMIVUDINE
  9. AZITHROMYCIN ANHYDROUS. [Concomitant]
     Active Substance: AZITHROMYCIN ANHYDROUS
  10. VITAMIN C [Concomitant]
     Active Substance: ASCORBIC ACID
     Route: 042
  11. EFAVIRENZ. [Concomitant]
     Active Substance: EFAVIRENZ
  12. DEXONA [DEXAMETHASONE SODIUM PHOSPHATE] [Concomitant]
  13. CLEXANE [Concomitant]
     Active Substance: ENOXAPARIN SODIUM

REACTIONS (3)
  - Off label use [Unknown]
  - Renal failure [Fatal]
  - Off label use [Unknown]

NARRATIVE: CASE EVENT DATE: 20200625
